FAERS Safety Report 8994471 (Version 1)
Quarter: 2012Q4

REPORT INFORMATION
  Report Type: Spontaneous
  Country: US (occurrence: None)
  Receive Date: 20121228
  Receipt Date: 20121228
  Transmission Date: 20130627
  Serious: No
  Sender: FDA-Public Use
  Company Number: None

PATIENT
  Sex: Female
  Weight: 110.22 kg

DRUGS (3)
  1. LEVOTHYROXINE [Suspect]
     Indication: HYPOTHYROIDISM
  2. CRESTOR [Concomitant]
  3. LISINOPRIL [Concomitant]

REACTIONS (4)
  - Alopecia [None]
  - Skin exfoliation [None]
  - Diarrhoea [None]
  - Dry skin [None]
